FAERS Safety Report 5331161-8 (Version None)
Quarter: 2007Q1

REPORT INFORMATION
  Report Type: 
  Country: None (occurrence: None)
  Receive Date: 20070227
  Receipt Date: 20060208
  Transmission Date: 20070707
  Serious: Yes (Other)
  Sender: FDA-Public Use
  Company Number: 435879

PATIENT
  Age: 14 Year
  Sex: Female
  Weight: 98.9 kg

DRUGS (1)
  1. ACCUTANE [Suspect]
     Indication: DRUG USE FOR UNKNOWN INDICATION
     Dosage: ORAL
     Route: 048
     Dates: start: 20050730, end: 20051019

REACTIONS (1)
  - BLOOD TRIGLYCERIDES INCREASED [None]
